FAERS Safety Report 9043767 (Version 1)
Quarter: 2013Q1

REPORT INFORMATION
  Report Type: Report from Study
  Country: US (occurrence: US)
  Receive Date: 20130129
  Receipt Date: 20130129
  Transmission Date: 20140127
  Serious: No
  Sender: FDA-Public Use
  Company Number: US-ABBOTT-12P-163-0915073-00

PATIENT
  Age: 15 Year
  Sex: Female

DRUGS (5)
  1. HUMIRA 40 MG/ 0.8 ML PRE-FILLED SYRINGE [Suspect]
     Indication: JUVENILE IDIOPATHIC ARTHRITIS
     Dates: start: 201201
  2. HUMIRA 40 MG/ 0.8 ML PRE-FILLED SYRINGE [Suspect]
     Indication: ANKYLOSING SPONDYLITIS
  3. SINGULAR [Concomitant]
     Indication: HYPERSENSITIVITY
     Dosage: 5 MG DAILY
     Route: 048
  4. ALBUTEROL [Concomitant]
     Indication: ASTHMA
     Dosage: RESCUE INHALER, AS NEEDED
  5. VITAMIN D3 [Concomitant]
     Indication: ARTHRITIS
     Dosage: 2000 UNITS DAILY
     Route: 048

REACTIONS (6)
  - Oropharyngeal pain [Not Recovered/Not Resolved]
  - Pyrexia [Not Recovered/Not Resolved]
  - Infection [Not Recovered/Not Resolved]
  - Streptococcus test positive [Not Recovered/Not Resolved]
  - Haemorrhage [Not Recovered/Not Resolved]
  - Ovarian cyst [Not Recovered/Not Resolved]
